FAERS Safety Report 26140262 (Version 1)
Quarter: 2025Q4

REPORT INFORMATION
  Report Type: Spontaneous
  Country: US (occurrence: None)
  Receive Date: 20251209
  Receipt Date: 20251209
  Transmission Date: 20260118
  Serious: No
  Sender: FDA-CTU
  Company Number: None

PATIENT
  Age: 33 Year
  Sex: Female
  Weight: 61.2 kg

DRUGS (1)
  1. UBRELVY [Suspect]
     Active Substance: UBROGEPANT
     Dosage: OTHER FREQUENCY : PRN MIGRAINES;
     Route: 048

REACTIONS (1)
  - Haemorrhage [None]

NARRATIVE: CASE EVENT DATE: 20251209
